FAERS Safety Report 5006716-0 (Version None)
Quarter: 2006Q2

REPORT INFORMATION
  Report Type: 
  Country: None (occurrence: None)
  Receive Date: 20060519
  Receipt Date: 20060511
  Transmission Date: 20061013
  Serious: Yes (Life-Threatening)
  Sender: FDA-Public Use
  Company Number: JP-MERCK-0605USA02573

PATIENT
  Age: 35 Year
  Sex: Female

DRUGS (5)
  1. PRIMAXIN [Suspect]
     Indication: ANTIPYRESIS
     Route: 042
     Dates: start: 20060509, end: 20060509
  2. MEDICON [Concomitant]
     Route: 048
     Dates: start: 20050505
  3. MUCOSOLVAN [Concomitant]
     Indication: SPUTUM RETENTION
     Route: 065
     Dates: start: 20060505
  4. CEFZON [Concomitant]
     Route: 065
     Dates: start: 20060507, end: 20060508
  5. LOXONIN [Concomitant]
     Indication: ANTIPYRESIS
     Route: 048
     Dates: start: 20050505

REACTIONS (2)
  - BRAIN DEATH [None]
  - LOSS OF CONSCIOUSNESS [None]
